FAERS Safety Report 8060779 (Version 2)
Quarter: 2014Q3

REPORT INFORMATION
  Report Type: Spontaneous
  Country: US (occurrence: US)
  Receive Date: 20110729
  Receipt Date: 20140805
  Transmission Date: 20150326
  Serious: Yes (Hospitalization, Other)
  Sender: FDA-Public Use
  Company Number: US-ROCHE-757336

PATIENT
  Sex: Female
  Weight: 108.9 kg

DRUGS (2)
  1. ACCUTANE [Suspect]
     Active Substance: ISOTRETINOIN
     Route: 065
     Dates: start: 199802, end: 199811
  2. ACCUTANE [Suspect]
     Active Substance: ISOTRETINOIN
     Indication: ACNE
     Route: 065
     Dates: start: 1995, end: 1996

REACTIONS (7)
  - Inflammatory bowel disease [Unknown]
  - Abdominal pain [Unknown]
  - Intestinal obstruction [Unknown]
  - Intestinal haemorrhage [Unknown]
  - Crohn^s disease [Unknown]
  - Rectal haemorrhage [Unknown]
  - Depression [Unknown]

NARRATIVE: CASE EVENT DATE: 1999
